FAERS Safety Report 24241718 (Version 1)
Quarter: 2024Q3

REPORT INFORMATION
  Report Type: Spontaneous
  Country: CA (occurrence: CA)
  Receive Date: 20240823
  Receipt Date: 20240823
  Transmission Date: 20241016
  Serious: Yes (Death)
  Sender: BOEHRINGER INGELHEIM
  Company Number: CA-BoehringerIngelheim-2024-BI-047274

PATIENT
  Sex: Female

DRUGS (2)
  1. OFEV [Suspect]
     Active Substance: NINTEDANIB
     Indication: Pulmonary fibrosis
  2. Oxygen concentrators [Concomitant]
     Indication: Product used for unknown indication
     Dates: start: 2020

REACTIONS (2)
  - Pulmonary fibrosis [Fatal]
  - Condition aggravated [Recovering/Resolving]
